FAERS Safety Report 20813637 (Version 2)
Quarter: 2022Q4

REPORT INFORMATION
  Report Type: Spontaneous
  Country: BR (occurrence: BR)
  Receive Date: 20220511
  Receipt Date: 20221022
  Transmission Date: 20230113
  Serious: Yes (Other)
  Sender: FDA-Public Use
  Company Number: BR-ABBOTT-2022A-1348366

PATIENT
  Sex: Female

DRUGS (2)
  1. DIVALPROEX SODIUM [Suspect]
     Active Substance: DIVALPROEX SODIUM
     Indication: Product used for unknown indication
     Dosage: STARTED MORE THAN 6 MONTHS AGO?EXTENDED RELEASE
     Route: 048
  2. DIVALPROEX SODIUM [Suspect]
     Active Substance: DIVALPROEX SODIUM
     Indication: Product used for unknown indication
     Dosage: DOSE REDUCED
     Route: 048

REACTIONS (23)
  - Swelling of eyelid [Unknown]
  - Affective disorder [Unknown]
  - Faeces discoloured [Unknown]
  - Faeces pale [Unknown]
  - Muscle spasms [Unknown]
  - Muscular weakness [Unknown]
  - Toxicity to various agents [Unknown]
  - Feeling abnormal [Unknown]
  - Wrong technique in product usage process [Unknown]
  - Pancytopenia [Recovering/Resolving]
  - Diarrhoea [Unknown]
  - Lymphadenopathy [Unknown]
  - Alopecia [Unknown]
  - Flatulence [Unknown]
  - Abdominal pain [Unknown]
  - Tremor [Unknown]
  - Back pain [Unknown]
  - Dry eye [Unknown]
  - Asthenia [Unknown]
  - Amnesia [Unknown]
  - Disturbance in attention [Unknown]
  - Alopecia [Unknown]
  - Pain [Not Recovered/Not Resolved]
